FAERS Safety Report 13691481 (Version 2)
Quarter: 2017Q4

REPORT INFORMATION
  Report Type: Spontaneous
  Country: CN (occurrence: CN)
  Receive Date: 20170626
  Receipt Date: 20171005
  Transmission Date: 20180320
  Serious: Yes (Other)
  Sender: FDA-Public Use
  Company Number: CN-MYLANLABS-2017M1037761

PATIENT
  Age: 45 Year
  Sex: Male

DRUGS (8)
  1. OXALIPLATIN. [Suspect]
     Active Substance: OXALIPLATIN
     Indication: HEPATOCELLULAR CARCINOMA
     Dosage: 150MG
     Route: 013
     Dates: start: 201511
  2. FLUOROURACIL. [Suspect]
     Active Substance: FLUOROURACIL
     Indication: HEPATOCELLULAR CARCINOMA
     Dosage: 400 MG/M2, PUMPED FOR 22H ON DAY 1 AND 2
     Route: 042
     Dates: start: 201511
  3. INVESTIGATIONAL ANTINEOPLASTIC DRUGS [Suspect]
     Active Substance: INVESTIGATIONAL PRODUCT
     Indication: HEPATOCELLULAR CARCINOMA
     Dosage: 500 MG/DAY
     Route: 048
     Dates: start: 201511
  4. ETHIODIZED OIL [Suspect]
     Active Substance: ETHIODIZED OIL
     Indication: HEPATOCELLULAR CARCINOMA
     Dosage: 10ML
     Route: 013
     Dates: start: 201511
  5. LEVOFOLINATE [Suspect]
     Active Substance: LEVOLEUCOVORIN CALCIUM
     Indication: HEPATOCELLULAR CARCINOMA
     Dosage: 200 MG/M2 ON DAY 1 AND 2
     Route: 065
     Dates: start: 201511
  6. OXALIPLATIN. [Suspect]
     Active Substance: OXALIPLATIN
     Dosage: 85 MG/M2 ON DAY 1
     Route: 042
     Dates: start: 201511
  7. FLUOROURACIL. [Suspect]
     Active Substance: FLUOROURACIL
     Dosage: 600 MG/M2, PUMPED FOR 22H ON DAY 1 AND 2
     Route: 042
     Dates: start: 201511
  8. TEGAFUR [Suspect]
     Active Substance: TEGAFUR
     Indication: HEPATOCELLULAR CARCINOMA
     Dosage: 1G
     Route: 013
     Dates: start: 201511

REACTIONS (7)
  - Diarrhoea [Unknown]
  - Hypertension [Unknown]
  - Platelet count decreased [Unknown]
  - Hepatic enzyme increased [Recovered/Resolved]
  - Blood bilirubin increased [Recovered/Resolved]
  - White blood cell count decreased [Unknown]
  - Palmar-plantar erythrodysaesthesia syndrome [Unknown]
